FAERS Safety Report 5101435-4 (Version None)
Quarter: 2006Q3

REPORT INFORMATION
  Report Type: 
  Country: None (occurrence: None)
  Receive Date: 20060911
  Receipt Date: 20060905
  Transmission Date: 20061208
  Serious: Yes (Life-Threatening)
  Sender: FDA-Public Use
  Company Number: JP-JPN-A200603573

PATIENT
  Age: 80 Year
  Sex: Female

DRUGS (1)
  1. ZOVIRAX [Suspect]
     Indication: HERPES ZOSTER
     Route: 042
     Dates: start: 20060902, end: 20060902

REACTIONS (1)
  - CARDIAC ARREST [None]
